FAERS Safety Report 8459155-4 (Version None)
Quarter: 2012Q2

REPORT INFORMATION
  Report Type: 
  Country: None (occurrence: None)
  Receive Date: 20120622
  Receipt Date: 20120618
  Transmission Date: 20120825
  Serious: Yes (Death)
  Sender: FDA-Public Use
  Company Number: FR-ROCHE-1079737

PATIENT

DRUGS (1)
  1. AVASTIN [Suspect]
     Indication: COLON CANCER

REACTIONS (1)
  - DISEASE PROGRESSION [None]
